FAERS Safety Report 5088474-7 (Version None)
Quarter: 2006Q3

REPORT INFORMATION
  Report Type: 
  Country: None (occurrence: None)
  Receive Date: 20060823
  Receipt Date: 20060823
  Transmission Date: 20061208
  Serious: Yes (Other)
  Sender: FDA-Public Use
  Company Number: None

PATIENT
  Sex: Male

DRUGS (1)
  1. LISINOPRIL [Suspect]
     Dosage: 10 MG - 1 QD
     Dates: start: 20040801, end: 20060701

REACTIONS (2)
  - ABDOMINAL PAIN UPPER [None]
  - VOMITING [None]
